FAERS Safety Report 12171560 (Version 2)
Quarter: 2016Q1

REPORT INFORMATION
  Report Type: Report from Study
  Country: FR (occurrence: FR)
  Receive Date: 20160311
  Receipt Date: 20160320
  Transmission Date: 20160526
  Serious: Yes (Hospitalization, Other)
  Sender: FDA-Public Use
  Company Number: FR-REGENERON PHARMACEUTICALS, INC.-2016-13523

PATIENT

DRUGS (5)
  1. EYLEA [Suspect]
     Active Substance: AFLIBERCEPT
     Dosage: 2 MG, OD
     Route: 031
     Dates: start: 20140925
  2. TETRACAINE. [Concomitant]
     Active Substance: TETRACAINE
     Indication: ANAESTHETIC PREMEDICATION
  3. STERDEX [Concomitant]
     Active Substance: DEXAMETHASONE\OXYTETRACYCLINE
     Indication: PROPHYLAXIS
  4. EYLEA [Suspect]
     Active Substance: AFLIBERCEPT
     Indication: AGE-RELATED MACULAR DEGENERATION
     Dosage: 2 MG, OD
     Route: 031
     Dates: start: 20140724
  5. EYLEA [Suspect]
     Active Substance: AFLIBERCEPT
     Dosage: 2 MG, OD
     Route: 031
     Dates: start: 20140827

REACTIONS (1)
  - Lens dislocation [Recovered/Resolved]

NARRATIVE: CASE EVENT DATE: 20151217
